FAERS Safety Report 7705716-7 (Version None)
Quarter: 2011Q3

REPORT INFORMATION
  Report Type: 
  Country: None (occurrence: None)
  Receive Date: 20110824
  Receipt Date: 20110816
  Transmission Date: 20111222
  Serious: Yes (Death, Other)
  Sender: FDA-Public Use
  Company Number: US-BAYER-201011347NA

PATIENT
  Age: 54 Year
  Sex: Female
  Weight: 73.3 kg

DRUGS (10)
  1. LASIX [Concomitant]
     Dosage: DAILY
     Route: 048
  2. ISOSORBIDE DINITRATE [Concomitant]
     Route: 048
  3. TRASYLOL [Suspect]
     Indication: AORTIC VALVE REPLACEMENT
     Route: 042
     Dates: start: 20061122
  4. NORVASC [Concomitant]
     Dosage: DAILY
     Route: 048
  5. PREVACID [Concomitant]
     Dosage: TWICE A DAY
     Route: 048
  6. ACETYLSALICYLIC ACID SRT [Concomitant]
     Dosage: DAILY
     Route: 048
  7. IRON SULFATETHIAMIN COMPOUND TAB [Concomitant]
     Dosage: THREE TIMES A DAY
     Route: 048
  8. ZOCOR [Concomitant]
     Dosage: DAILY
     Route: 048
  9. VASOTEC [Concomitant]
     Route: 048
  10. LOPRESSOR [Concomitant]
     Dosage: TWICE A DAY
     Route: 048

REACTIONS (15)
  - ANXIETY [None]
  - RENAL INJURY [None]
  - ORGAN FAILURE [None]
  - CEREBROVASCULAR ACCIDENT [None]
  - UNEVALUABLE EVENT [None]
  - MULTI-ORGAN FAILURE [None]
  - RENAL IMPAIRMENT [None]
  - PAIN [None]
  - INJURY [None]
  - RENAL FAILURE [None]
  - CARDIAC DISORDER [None]
  - FEAR [None]
  - DEATH [None]
  - DEPRESSION [None]
  - ANHEDONIA [None]
